FAERS Safety Report 9329480 (Version 5)
Quarter: 2013Q3

REPORT INFORMATION
  Report Type: Report from Study
  Country: NL (occurrence: NL)
  Receive Date: 20130604
  Receipt Date: 20130827
  Transmission Date: 20140515
  Serious: Yes (Other)
  Sender: FDA-Public Use
  Company Number: NL-GLAXOSMITHKLINE-Z0019834B

PATIENT
  Age: 42 Year
  Sex: Female
  Weight: 66.4 kg

DRUGS (9)
  1. DABRAFENIB [Suspect]
     Indication: MALIGNANT MELANOMA
     Dosage: 150MG TWICE PER DAY
     Route: 048
     Dates: start: 20130424, end: 20130522
  2. TRAMETINIB [Suspect]
     Indication: MALIGNANT MELANOMA
     Dosage: 2MG PER DAY
     Route: 048
     Dates: start: 20130424, end: 20130528
  3. PARACETAMOL [Concomitant]
     Indication: PYREXIA
     Dosage: 1000MG AS REQUIRED
     Route: 048
     Dates: start: 2013
  4. ESOMEPRAZOL [Concomitant]
     Indication: PROPHYLAXIS
     Dosage: 20MG PER DAY
     Route: 048
     Dates: start: 20130523, end: 20130528
  5. OXYNORM [Concomitant]
     Indication: PAIN
     Dosage: 5MG AS REQUIRED
     Route: 048
     Dates: start: 20130704, end: 20130705
  6. OXYCONTIN [Concomitant]
     Indication: PAIN
     Dosage: 5MG TWICE PER DAY
     Route: 048
     Dates: start: 20130704, end: 20130705
  7. MOVICOLON [Concomitant]
     Indication: CONSTIPATION
     Dosage: 1 PER DAY
     Route: 048
     Dates: start: 20130527
  8. METRONIDAZOL [Concomitant]
     Indication: DERMATITIS ACNEIFORM
     Dosage: 1U UNKNOWN
     Route: 061
     Dates: start: 20130516
  9. ACETAMINOPHEN [Concomitant]
     Indication: PYREXIA
     Dosage: 500MG AS REQUIRED
     Route: 048
     Dates: start: 20130522

REACTIONS (1)
  - Alanine aminotransferase increased [Recovered/Resolved]
